FAERS Safety Report 5256375-7 (Version None)
Quarter: 2007Q1

REPORT INFORMATION
  Report Type: 
  Country: None (occurrence: None)
  Receive Date: 20070306
  Receipt Date: 20070226
  Transmission Date: 20070707
  Serious: Yes (Death)
  Sender: FDA-Public Use
  Company Number: JP-ROCHE-482161

PATIENT
  Age: 90 Year
  Sex: Male

DRUGS (4)
  1. TICLOPIDINE HCL [Suspect]
     Indication: CEREBRAL INFARCTION
     Route: 048
     Dates: start: 20061201, end: 20070115
  2. DIGOXIN [Concomitant]
     Indication: ATRIAL FIBRILLATION
     Route: 048
     Dates: start: 20061201, end: 20070115
  3. FUROSEMIDE [Concomitant]
     Indication: CARDIAC FAILURE CONGESTIVE
     Route: 048
     Dates: start: 20061201, end: 20070115
  4. SPIRONOLACTONE [Concomitant]
     Indication: CARDIAC FAILURE CONGESTIVE
     Route: 048
     Dates: start: 20061201, end: 20070115

REACTIONS (3)
  - HEPATOCELLULAR DAMAGE [None]
  - JAUNDICE [None]
  - LIVER DISORDER [None]
